FAERS Safety Report 7952941-6 (Version None)
Quarter: 2011Q4

REPORT INFORMATION
  Report Type: 
  Country: None (occurrence: None)
  Receive Date: 20111129
  Receipt Date: 20111114
  Transmission Date: 20120403
  Serious: Yes (Other)
  Sender: FDA-Public Use
  Company Number: IT-006822

PATIENT
  Age: 41 Year
  Sex: Female

DRUGS (5)
  1. DECAPEPTYL /00975902/ (DECAPEPTYL) (NOT SPECIFIED) [Suspect]
     Indication: IN VITRO FERTILISATION
  2. GONASI HP (GONASI HP) (NOT SPECIFIED) [Suspect]
     Indication: IN VITRO FERTILISATION
  3. MENOPUR [Suspect]
     Indication: IN VITRO FERTILISATION
  4. GONAL-F [Suspect]
     Indication: IN VITRO FERTILISATION
  5. PROGESTERONE [Suspect]
     Indication: IN VITRO FERTILISATION
     Dosage: 50 MG IM, INTRAMUSULAR
     Route: 030

REACTIONS (3)
  - MATERNAL EXPOSURE BEFORE PREGNANCY [None]
  - PREGNANCY [None]
  - CYSTOSARCOMA PHYLLODES [None]
